FAERS Safety Report 8081772-4 (Version None)
Quarter: 2012Q1

REPORT INFORMATION
  Report Type: 
  Country: None (occurrence: None)
  Receive Date: 20120130
  Receipt Date: 20120125
  Transmission Date: 20120608
  Serious: No
  Sender: FDA-Public Use
  Company Number: US-PFIZER INC-2012021311

PATIENT
  Sex: Female
  Weight: 52.154 kg

DRUGS (8)
  1. LEVOTHYROXINE [Concomitant]
     Dosage: UNK
  2. CHANTIX [Suspect]
     Dosage: 1 MG, 2X/DAY
     Route: 048
  3. FLOVENT [Concomitant]
     Indication: ASTHMA
     Dosage: UNK
  4. CHANTIX [Suspect]
     Indication: SMOKING CESSATION THERAPY
     Dosage: 0.5 MG, 1X/DAY
     Route: 048
     Dates: start: 20120105
  5. DILTIAZEM [Concomitant]
     Indication: HYPERTENSION
     Dosage: UNK
  6. ALBUTEROL [Concomitant]
     Indication: ASTHMA
     Dosage: UNK
  7. ATROVENT [Concomitant]
     Indication: ASTHMA
     Dosage: UNK
  8. OMEPRAZOLE [Concomitant]
     Dosage: UNK

REACTIONS (6)
  - PRURITUS [None]
  - ERYTHEMA [None]
  - EUPHORIC MOOD [None]
  - FURUNCLE [None]
  - SKIN LESION [None]
  - FATIGUE [None]
